FAERS Safety Report 10405141 (Version 1)
Quarter: 2014Q3

REPORT INFORMATION
  Report Type: Spontaneous
  Country: US (occurrence: None)
  Receive Date: 20140820
  Receipt Date: 20140820
  Transmission Date: 20150326
  Serious: Yes (Hospitalization, Other)
  Sender: FDA-Public Use
  Company Number: ADR-2014-01454

PATIENT
  Age: 59 Year
  Sex: Female

DRUGS (4)
  1. FENTANYL. [Suspect]
     Active Substance: FENTANYL
  2. DILAUDID [Suspect]
     Active Substance: HYDROMORPHONE HYDROCHLORIDE
     Indication: PAIN
     Dosage: 1.1MG/DAY
  3. BACLOFEN INTRATHECAL 555MCG/ML [Suspect]
     Active Substance: BACLOFEN
     Indication: PAIN
     Dosage: 152.68MCG/DAY
  4. CLONIDINE INTRATHECAL 444MG/ML [Suspect]
     Active Substance: CLONIDINE
     Dosage: 122.15MG/DAY?

REACTIONS (6)
  - Condition aggravated [None]
  - Back pain [None]
  - Granuloma [None]
  - Medical device complication [None]
  - Pain in extremity [None]
  - Myocardial infarction [None]
